FAERS Safety Report 23130620 (Version 1)
Quarter: 2023Q4

REPORT INFORMATION
  Report Type: Spontaneous
  Country: JP (occurrence: JP)
  Receive Date: 20231031
  Receipt Date: 20231031
  Transmission Date: 20240110
  Serious: Yes (Other)
  Sender: FDA-Public Use
  Company Number: JP-SUN PHARMACEUTICAL INDUSTRIES LTD-2023R1-415394

PATIENT
  Age: 69 Year
  Sex: Male

DRUGS (8)
  1. PREDNISONE [Suspect]
     Active Substance: PREDNISONE
     Indication: Haemolytic anaemia
     Dosage: 15 MILLIGRAM, DAILY
     Route: 065
  2. PREDNISONE [Suspect]
     Active Substance: PREDNISONE
     Indication: Granulomatosis with polyangiitis
  3. TACROLIMUS [Concomitant]
     Active Substance: TACROLIMUS
     Indication: Haemolytic anaemia
     Dosage: 3.5 MILLIGRAM, DAILY
     Route: 065
  4. TACROLIMUS [Concomitant]
     Active Substance: TACROLIMUS
     Indication: Granulomatosis with polyangiitis
  5. SULFAMETHOXAZOLE\TRIMETHOPRIM [Concomitant]
     Active Substance: SULFAMETHOXAZOLE\TRIMETHOPRIM
     Indication: Haemolytic anaemia
     Dosage: 480 MILLIGRAM, DAILY
     Route: 065
  6. SULFAMETHOXAZOLE\TRIMETHOPRIM [Concomitant]
     Active Substance: SULFAMETHOXAZOLE\TRIMETHOPRIM
     Indication: Granulomatosis with polyangiitis
  7. VONOPRAZAN [Concomitant]
     Active Substance: VONOPRAZAN
     Indication: Haemolytic anaemia
     Dosage: 20 MILLIGRAM, DAILY
     Route: 065
  8. VONOPRAZAN [Concomitant]
     Active Substance: VONOPRAZAN
     Indication: Granulomatosis with polyangiitis

REACTIONS (1)
  - Condition aggravated [Unknown]
